FAERS Safety Report 21861982 (Version 2)
Quarter: 2023Q4

REPORT INFORMATION
  Report Type: Report from Study
  Country: US (occurrence: US)
  Receive Date: 20230113
  Receipt Date: 20231108
  Transmission Date: 20240110
  Serious: Yes (Other)
  Sender: FDA-Public Use
  Company Number: US-SHIRE-US201921123

PATIENT
  Sex: Female

DRUGS (1)
  1. HUMAN IMMUNOGLOBULIN G\HYALURONIDASE RECOMBINANT HUMAN [Suspect]
     Active Substance: HUMAN IMMUNOGLOBULIN G\HYALURONIDASE (HUMAN RECOMBINANT)
     Indication: Immunodeficiency common variable
     Dosage: 35 GRAM, Q4WEEKS
     Route: 065

REACTIONS (7)
  - Encephalitis autoimmune [Unknown]
  - Abdominal discomfort [Recovering/Resolving]
  - Eczema [Recovering/Resolving]
  - Infusion site discharge [Unknown]
  - COVID-19 [Recovered/Resolved]
  - Gastrointestinal disorder [Unknown]
  - Arthralgia [Unknown]
